FAERS Safety Report 17354902 (Version 3)
Quarter: 2020Q4

REPORT INFORMATION
  Report Type: Spontaneous
  Country: US (occurrence: US)
  Receive Date: 20200131
  Receipt Date: 20201119
  Transmission Date: 20210113
  Serious: Yes (Other)
  Sender: FDA-Public Use
  Company Number: US-PFIZER INC-2020041544

PATIENT
  Age: 69 Year
  Sex: Male

DRUGS (1)
  1. XELJANZ XR [Suspect]
     Active Substance: TOFACITINIB CITRATE
     Dosage: 11 MG, UNK

REACTIONS (7)
  - Anaemia [Unknown]
  - Cataract [Unknown]
  - Nerve compression [Unknown]
  - Bursa injury [Unknown]
  - Joint space narrowing [Unknown]
  - Infection [Unknown]
  - Hiatus hernia [Unknown]
